FAERS Safety Report 5116942-8 (Version None)
Quarter: 2006Q3

REPORT INFORMATION
  Report Type: 
  Country: None (occurrence: None)
  Receive Date: 20060925
  Receipt Date: 20060907
  Transmission Date: 20061208
  Serious: Yes (Other)
  Sender: FDA-Public Use
  Company Number: S06-SWI-03805-01

PATIENT
  Age: 88 Year
  Sex: Female

DRUGS (4)
  1. CITALOPRAM HYDROBROMIDE [Suspect]
     Indication: DEPRESSION
     Dosage: 4 MG QD PO
     Route: 048
     Dates: start: 20060731, end: 20060808
  2. XANAX [Suspect]
     Dates: start: 20060725, end: 20060725
  3. LEXOTANIL (BROMAZEPAM) [Suspect]
     Dates: start: 20060725, end: 20060725
  4. ROHYPNOL (FLUNITRAZEPAM) [Suspect]
     Dates: start: 20060725, end: 20060725

REACTIONS (3)
  - CONFUSIONAL STATE [None]
  - HYPONATRAEMIA [None]
  - SUICIDE ATTEMPT [None]
